FAERS Safety Report 10889238 (Version 1)
Quarter: 2015Q1

REPORT INFORMATION
  Report Type: Spontaneous
  Country: GB (occurrence: GB)
  Receive Date: 20150305
  Receipt Date: 20150305
  Transmission Date: 20150721
  Serious: Yes (Other)
  Sender: FDA-Public Use
  Company Number: GB-MYLANLABS-2015M1006708

PATIENT

DRUGS (1)
  1. CITALOPRAM [Suspect]
     Active Substance: CITALOPRAM HYDROBROMIDE
     Dosage: 20MG
     Route: 065

REACTIONS (5)
  - Akathisia [Unknown]
  - Irritability [Unknown]
  - Disturbance in attention [Unknown]
  - Agitation [Unknown]
  - Alcohol abuse [Unknown]
